FAERS Safety Report 4970264-4 (Version None)
Quarter: 2006Q2

REPORT INFORMATION
  Report Type: 
  Country: None (occurrence: None)
  Receive Date: 20060406
  Receipt Date: 20060329
  Transmission Date: 20061013
  Serious: Yes (Hospitalization)
  Sender: FDA-Public Use
  Company Number: TCI2005A05289

PATIENT
  Age: 52 Year
  Sex: Female

DRUGS (3)
  1. ACTOS [Suspect]
     Indication: DIABETES MELLITUS NON-INSULIN-DEPENDENT
     Dosage: 30 MG (15 MG, 2 IN 1 D)
     Route: 048
     Dates: end: 20051219
  2. GLUCOBAY [Suspect]
     Dosage: 300 MG (100 MG, 3 IN 1 D)
     Route: 048
     Dates: end: 20051219
  3. METFORMIN HCL [Concomitant]

REACTIONS (8)
  - ABDOMINAL PAIN UPPER [None]
  - ANOREXIA [None]
  - CHOLESTASIS [None]
  - HEPATIC STEATOSIS [None]
  - JAUNDICE [None]
  - MALAISE [None]
  - NAUSEA [None]
  - PRURITUS [None]
